FAERS Safety Report 22007876 (Version 1)
Quarter: 2023Q1

REPORT INFORMATION
  Report Type: Spontaneous
  Country: GB (occurrence: GB)
  Receive Date: 20230218
  Receipt Date: 20230218
  Transmission Date: 20230418
  Serious: Yes (Other)
  Sender: FDA-Public Use
  Company Number: None

PATIENT
  Age: 73 Year
  Sex: Female
  Weight: 82 kg

DRUGS (5)
  1. AMOXICILLIN [Suspect]
     Active Substance: AMOXICILLIN
     Indication: Hypothyroidism
     Dosage: 250MG AND 500MG CAPSULES
     Route: 048
  2. AMIODARONE [Concomitant]
     Active Substance: AMIODARONE
     Dosage: ON SPECIALIST ADVICE ONLY *SHARED CARE DRUG*
     Dates: start: 20221216
  3. IBUPROFEN [Concomitant]
     Active Substance: IBUPROFEN
     Dosage: TO THE AFFECTED AREA(S)
     Dates: start: 20230130
  4. PREDNISOLONE [Concomitant]
     Active Substance: PREDNISOLONE
     Dates: start: 20230130
  5. BECLOMETHASONE DIPROPIONATE\FORMOTEROL FUMARATE\GLYCOPYRROLATE [Concomitant]
     Active Substance: BECLOMETHASONE DIPROPIONATE\FORMOTEROL FUMARATE\GLYCOPYRROLATE
     Dosage: NEXTHALER 88MICROGRAMS/DOSE / 5MICROGRAMS/DOSE
     Route: 055
     Dates: start: 20221209

REACTIONS (1)
  - Conjunctivitis allergic [Recovered/Resolved]
